FAERS Safety Report 8596332 (Version 2)
Quarter: 2012Q4

REPORT INFORMATION
  Report Type: 
  Country: FR (occurrence: FR)
  Receive Date: 20120605
  Receipt Date: 20120831
  Transmission Date: 20130627
  Serious: No
  Sender: FDA-Public Use
  Company Number: PHHY2012FR046891

PATIENT
  Age: 42 None
  Sex: Female
  Weight: 55 kg

DRUGS (2)
  1. EXTAVIA [Suspect]
     Indication: MULTIPLE SCLEROSIS
     Dosage: 1 DF, every 2 days
     Route: 058
     Dates: start: 20120703
  2. PARACETAMOL [Concomitant]

REACTIONS (2)
  - Injection site erythema [Unknown]
  - Injection site pruritus [Unknown]
